FAERS Safety Report 4880718-7 (Version None)
Quarter: 2006Q1

REPORT INFORMATION
  Report Type: 
  Country: None (occurrence: None)
  Receive Date: 20060113
  Receipt Date: 20051220
  Transmission Date: 20060701
  Serious: Yes (Hospitalization, Other)
  Sender: FDA-Public Use
  Company Number: US-MERCK-0512USA03318

PATIENT
  Age: 74 Year
  Sex: Female
  Weight: 82 kg

DRUGS (7)
  1. VIOXX [Suspect]
     Indication: PAIN
     Route: 048
     Dates: start: 20000701, end: 20030101
  2. COUMADIN [Concomitant]
     Route: 065
  3. TIAZAC [Concomitant]
     Route: 065
  4. ZOCOR [Concomitant]
     Route: 065
  5. LASIX [Concomitant]
     Route: 065
  6. DIGITEK [Concomitant]
     Route: 065
  7. ACETAMINOPHEN [Concomitant]
     Route: 065

REACTIONS (6)
  - ABDOMINAL PAIN [None]
  - ADVERSE EVENT [None]
  - ARTERIAL OCCLUSIVE DISEASE [None]
  - BREAST CANCER [None]
  - CHEST PAIN [None]
  - EMBOLIC STROKE [None]
